FAERS Safety Report 17680312 (Version 1)
Quarter: 2020Q2

REPORT INFORMATION
  Report Type: Spontaneous
  Country: US (occurrence: US)
  Receive Date: 20200417
  Receipt Date: 20200417
  Transmission Date: 20200714
  Serious: Yes (Other)
  Sender: FDA-Public Use
  Company Number: US-SA-2020SA100396

PATIENT
  Age: 48 Year
  Sex: Female

DRUGS (10)
  1. VITAMINS NOS [Concomitant]
     Active Substance: VITAMINS
  2. DUPIXENT [Suspect]
     Active Substance: DUPILUMAB
     Indication: MULTIPLE SCLEROSIS
     Dosage: 300 MG, QOW
     Route: 058
     Dates: start: 20180228
  3. FISH OIL [Concomitant]
     Active Substance: FISH OIL
  4. VITAMIN B1 [Concomitant]
     Active Substance: THIAMINE HYDROCHLORIDE
  5. VITAMIN D NOS [Concomitant]
     Active Substance: VITAMIN D NOS
  6. ESTRADIOL. [Concomitant]
     Active Substance: ESTRADIOL
  7. PROBIOTICS NOS [Concomitant]
     Active Substance: PROBIOTICS NOS
  8. VITAMIN C [Concomitant]
     Active Substance: ASCORBIC ACID
  9. VITAMIN E NOS [Concomitant]
     Active Substance: .ALPHA.-TOCOPHEROL
  10. PROGESTERONE. [Concomitant]
     Active Substance: PROGESTERONE

REACTIONS (2)
  - Multiple sclerosis relapse [Not Recovered/Not Resolved]
  - Product use in unapproved indication [Unknown]

NARRATIVE: CASE EVENT DATE: 20180228
